FAERS Safety Report 6038530-1 (Version None)
Quarter: 2009Q1

REPORT INFORMATION
  Report Type: 
  Country: None (occurrence: None)
  Receive Date: 20090115
  Receipt Date: 20080922
  Transmission Date: 20090719
  Serious: No
  Sender: FDA-Public Use
  Company Number: US-KINGPHARMUSA00001-K200801108

PATIENT
  Age: 50 Year
  Sex: Female
  Weight: 77.098 kg

DRUGS (1)
  1. EPIPEN [Suspect]
     Indication: ACCIDENTAL EXPOSURE
     Dosage: UNK, SINGLE
     Dates: start: 20080922, end: 20080922

REACTIONS (3)
  - ACCIDENTAL NEEDLE STICK [None]
  - INJECTION SITE PAIN [None]
  - LOCAL REACTION [None]
